FAERS Safety Report 6414196-3 (Version None)
Quarter: 2009Q4

REPORT INFORMATION
  Report Type: 
  Country: None (occurrence: None)
  Receive Date: 20091026
  Receipt Date: 20091014
  Transmission Date: 20100525
  Serious: Yes (Other)
  Sender: FDA-Public Use
  Company Number: GB-PFIZER INC-2006094264

PATIENT
  Age: 57 Year

DRUGS (3)
  1. SUNITINIB MALATE [Suspect]
     Indication: RENAL CELL CARCINOMA
     Dosage: 50 MG, 1X/DAY
     Route: 048
     Dates: start: 20060714, end: 20060728
  2. DEXAMETHASONE [Concomitant]
     Route: 048
     Dates: start: 20060618
  3. DEXAMETHASONE [Concomitant]
     Route: 048
     Dates: start: 20060728

REACTIONS (1)
  - VASCULITIS [None]
